FAERS Safety Report 16140855 (Version 1)
Quarter: 2019Q2

REPORT INFORMATION
  Report Type: Spontaneous
  Country: US (occurrence: US)
  Receive Date: 20190329
  Receipt Date: 20190329
  Transmission Date: 20190711
  Serious: No
  Sender: FDA-Public Use
  Company Number: None

PATIENT
  Age: 31 Year
  Sex: Female

DRUGS (1)
  1. PROGESTERONE. [Suspect]
     Active Substance: PROGESTERONE
     Indication: PRODUCT USED FOR UNKNOWN INDICATION
     Dosage: ?          QUANTITY:10 ML;?
     Route: 030
     Dates: start: 20190327

REACTIONS (5)
  - Product quality issue [None]
  - Pruritus [None]
  - Injection site swelling [None]
  - Rash [None]
  - Injection site urticaria [None]

NARRATIVE: CASE EVENT DATE: 20190327
